FAERS Safety Report 13702270 (Version 1)
Quarter: 2017Q2

REPORT INFORMATION
  Report Type: Spontaneous
  Country: US (occurrence: US)
  Receive Date: 20170629
  Receipt Date: 20170629
  Transmission Date: 20170830
  Serious: No
  Sender: FDA-Public Use
  Company Number: US-GLAXOSMITHKLINE-US2017099790

PATIENT
  Age: 36 Year
  Sex: Female

DRUGS (1)
  1. WELLBUTRIN SR [Suspect]
     Active Substance: BUPROPION HYDROCHLORIDE
     Indication: DEPRESSION
     Dosage: 150 MG, QD
     Dates: start: 20170613, end: 20170623

REACTIONS (3)
  - Tinnitus [Not Recovered/Not Resolved]
  - Anxiety [Recovering/Resolving]
  - Intentional underdose [Recovered/Resolved]

NARRATIVE: CASE EVENT DATE: 20170613
